FAERS Safety Report 9912247 (Version 1)
Quarter: 2014Q1

REPORT INFORMATION
  Report Type: Spontaneous
  Country: US (occurrence: US)
  Receive Date: 20140220
  Receipt Date: 20140220
  Transmission Date: 20141002
  Serious: Yes (Other)
  Sender: FDA-Public Use
  Company Number: US-SA-2013SA134352

PATIENT
  Sex: 0

DRUGS (4)
  1. ZALTRAP [Suspect]
     Route: 065
  2. IRINOTECAN [Suspect]
     Route: 065
  3. 5-FU [Suspect]
     Route: 065
  4. LEUCOVORIN [Suspect]
     Route: 065

REACTIONS (1)
  - Urinary bladder haemorrhage [Not Recovered/Not Resolved]
